FAERS Safety Report 9247512 (Version 1)
Quarter: 2013Q2

REPORT INFORMATION
  Report Type: Report from Study
  Country: DE (occurrence: DE)
  Receive Date: 20130423
  Receipt Date: 20130423
  Transmission Date: 20140414
  Serious: Yes (Hospitalization)
  Sender: FDA-Public Use
  Company Number: PHHY2012DE115672

PATIENT
  Age: 74 Year
  Sex: Male
  Weight: 94 kg

DRUGS (8)
  1. ACZ885 [Suspect]
     Indication: CRYOPYRIN ASSOCIATED PERIODIC SYNDROME
     Dosage: 300 MG, UNK
     Route: 058
     Dates: start: 20120329, end: 20120911
  2. ACETYLSALICYLIC ACID [Concomitant]
     Indication: CORONARY ARTERY DISEASE
     Dosage: 100 MG, UNK
     Dates: start: 201210
  3. BELOC ZOK [Concomitant]
     Dosage: 95 MG, QD
  4. DELIX [Concomitant]
     Dosage: 5 MG, QD
  5. SIMVASTATIN [Concomitant]
     Dosage: 20 MG, QD
  6. MARCUMAR [Concomitant]
     Dates: start: 2005
  7. BICALUTAMID [Concomitant]
     Indication: PROSTATE CANCER
     Dates: start: 201203
  8. PAMORELIN [Concomitant]
     Indication: PROSTATE CANCER
     Dates: start: 201206

REACTIONS (3)
  - Coronary artery disease [Recovering/Resolving]
  - Angina pectoris [Recovering/Resolving]
  - Prostate cancer [Recovering/Resolving]
